FAERS Safety Report 4884413-X (Version None)
Quarter: 2006Q1

REPORT INFORMATION
  Report Type: 
  Country: None (occurrence: None)
  Receive Date: 20060119
  Receipt Date: 20060111
  Transmission Date: 20060701
  Serious: Yes (Hospitalization)
  Sender: FDA-Public Use
  Company Number: JP-JNJFOC-20051000638

PATIENT
  Sex: Female
  Weight: 55 kg

DRUGS (16)
  1. REMICADE [Suspect]
     Route: 042
  2. REMICADE [Suspect]
     Route: 042
  3. REMICADE [Suspect]
     Indication: RHEUMATOID ARTHRITIS
     Route: 042
  4. METOLATE [Suspect]
     Dosage: IMPROVEMENT WITH DISCONTINUATION OF DRUG
     Route: 048
  5. METOLATE [Suspect]
     Route: 048
  6. METOLATE [Suspect]
     Indication: RHEUMATOID ARTHRITIS
     Route: 048
  7. PREDNISOLONE [Suspect]
     Indication: RHEUMATOID ARTHRITIS
     Route: 048
  8. RHEUMATREX [Concomitant]
     Indication: RHEUMATOID ARTHRITIS
     Route: 048
  9. FOSAMAC [Concomitant]
     Route: 048
  10. INTEBAN [Concomitant]
     Indication: RHEUMATOID ARTHRITIS
     Route: 054
  11. FOLIAMIN [Concomitant]
     Route: 048
  12. GASTER D [Concomitant]
     Route: 048
  13. PROMAC [Concomitant]
     Route: 048
  14. ALFAROL [Concomitant]
     Dosage: DOSE: 0.75 RG
     Route: 048
  15. PERSANTIN [Concomitant]
     Route: 048
  16. PYDOXAL [Concomitant]
     Route: 048

REACTIONS (3)
  - CRYPTOGENIC ORGANIZING PNEUMONIA [None]
  - LUNG INFECTION PSEUDOMONAL [None]
  - PSEUDOMONAS INFECTION [None]
